FAERS Safety Report 8885776 (Version 1)
Quarter: 2012Q4

REPORT INFORMATION
  Report Type: 
  Country: GB (occurrence: GB)
  Receive Date: 20121102
  Receipt Date: 20121102
  Transmission Date: 20130627
  Serious: Yes (Other)
  Sender: FDA-Public Use
  Company Number: GB-PFIZER INC-2012272950

PATIENT
  Age: 86 Year
  Sex: Male

DRUGS (7)
  1. AMIODARONE HCL [Suspect]
     Indication: LEFT VENTRICULAR DYSFUNCTION
     Dosage: 200 mg, UNK
     Route: 065
     Dates: start: 201202
  2. LATANOPROST [Concomitant]
     Dosage: UNK
  3. WARFARIN [Concomitant]
     Dosage: UNK
  4. TAMSULOSIN HYDROCHLORIDE [Concomitant]
     Dosage: UNK
  5. CANDESARTAN [Concomitant]
     Dosage: UNK
  6. ATORVASTATIN [Concomitant]
     Dosage: UNK
  7. SILDENAFIL [Concomitant]
     Dosage: UNK

REACTIONS (1)
  - Musculoskeletal pain [Recovering/Resolving]
